FAERS Safety Report 5252542-7 (Version None)
Quarter: 2007Q1

REPORT INFORMATION
  Report Type: 
  Country: None (occurrence: None)
  Receive Date: 20070301
  Receipt Date: 20070216
  Transmission Date: 20070707
  Serious: Yes (Hospitalization)
  Sender: FDA-Public Use
  Company Number: PHEH2007US02071

PATIENT
  Age: 61 Year
  Sex: Male

DRUGS (2)
  1. ZOMETA [Suspect]
     Indication: METASTASES TO BONE
     Dosage: 4 MG
     Dates: start: 20070206
  2. ERBITUX [Concomitant]
     Indication: COLON CANCER
     Dosage: UNK, ONCE/SINGLE
     Dates: start: 20070206

REACTIONS (6)
  - ACUTE RESPIRATORY FAILURE [None]
  - BLOOD PRESSURE SYSTOLIC DECREASED [None]
  - CONFUSIONAL STATE [None]
  - MENINGITIS ASEPTIC [None]
  - PYREXIA [None]
  - TREMOR [None]
